FAERS Safety Report 5680248-9 (Version None)
Quarter: 2008Q1

REPORT INFORMATION
  Report Type: 
  Country: None (occurrence: None)
  Receive Date: 20080326
  Receipt Date: 20080319
  Transmission Date: 20080703
  Serious: Yes (Death, Life-Threatening, Hospitalization, Disabling, Other)
  Sender: FDA-Public Use
  Company Number: PHHO2007US11220

PATIENT
  Age: 56 Year
  Sex: Female
  Weight: 63.28 kg

DRUGS (14)
  1. ULTRAM [Concomitant]
  2. OXYCODONE HCL [Concomitant]
  3. PROZAC [Concomitant]
  4. ACYCLOVIR [Concomitant]
  5. FLUCONAZOLE [Concomitant]
  6. NOVOLOG [Concomitant]
  7. AMN107 [Suspect]
     Indication: CHRONIC MYELOID LEUKAEMIA
     Dosage: 400 MG, BID
     Route: 048
     Dates: start: 20070613, end: 20070630
  8. SENNA [Concomitant]
  9. PREDNISONE TAB [Concomitant]
  10. AMBIEN [Concomitant]
  11. PRILOSEC [Concomitant]
  12. LEVAQUIN [Concomitant]
  13. INSULIN [Concomitant]
  14. BUSULFAN [Concomitant]

REACTIONS (11)
  - CHRONIC MYELOID LEUKAEMIA [None]
  - DEMYELINATING POLYNEUROPATHY [None]
  - DRUG INEFFECTIVE [None]
  - GUILLAIN-BARRE SYNDROME [None]
  - INFECTION [None]
  - LYMPHOCYTIC INFILTRATION [None]
  - METASTASIS [None]
  - MUSCULAR WEAKNESS [None]
  - PNEUMONIA [None]
  - RENAL CYST [None]
  - SINUS TACHYCARDIA [None]
